FAERS Safety Report 6749031 (Version 2)
Quarter: 2012Q4

REPORT INFORMATION
  Report Type: Report from Study
  Country: US (occurrence: US)
  Receive Date: 20080905
  Receipt Date: 20121212
  Transmission Date: 20130627
  Serious: Yes (Hospitalization)
  Sender: FDA-Public Use
  Company Number: US-JNJFOC-20080701550

PATIENT
  Age: 59 Year
  Sex: Male
  Weight: 105.7 kg

DRUGS (5)
  1. DOXORUBICIN HYDROCHLORIDE [Suspect]
     Indication: MULTIPLE MYELOMA
     Route: 042
     Dates: start: 20080609, end: 20080609
  2. REVLIMID [Suspect]
     Indication: MULTIPLE MYELOMA
     Dosage: start date 09-JUN-2008
     Route: 048
     Dates: start: 20080609, end: 20080629
  3. DEXAMETHASONE [Suspect]
     Indication: MULTIPLE MYELOMA
     Route: 048
     Dates: start: 20080609, end: 20080612
  4. COUMADIN [Concomitant]
     Route: 048
  5. LEVAQUIN [Concomitant]
     Route: 048

REACTIONS (1)
  - Pneumocystis jiroveci pneumonia [Recovered/Resolved]
